FAERS Safety Report 16114469 (Version 1)
Quarter: 2019Q1

REPORT INFORMATION
  Report Type: Spontaneous
  Country: FR (occurrence: FR)
  Receive Date: 20190325
  Receipt Date: 20190325
  Transmission Date: 20190418
  Serious: Yes (Hospitalization)
  Sender: FDA-Public Use
  Company Number: FR-JNJFOC-20190326703

PATIENT
  Age: 28 Year
  Sex: Female

DRUGS (5)
  1. METHADONE [Suspect]
     Active Substance: METHADONE HYDROCHLORIDE
     Indication: POISONING DELIBERATE
     Route: 042
     Dates: start: 20190217, end: 20190217
  2. RISPERDAL [Suspect]
     Active Substance: RISPERIDONE
     Indication: POISONING DELIBERATE
     Route: 042
     Dates: start: 20190217, end: 20190217
  3. ZOPICLONE [Suspect]
     Active Substance: ZOPICLONE
     Indication: POISONING DELIBERATE
     Route: 042
     Dates: start: 20190217, end: 20190217
  4. COCAINE [Suspect]
     Active Substance: COCAINE
     Indication: DRUG DEPENDENCE
     Route: 042
     Dates: start: 20190217, end: 20190217
  5. SERESTA [Suspect]
     Active Substance: OXAZEPAM
     Indication: POISONING DELIBERATE
     Route: 042
     Dates: start: 20190217, end: 20190217

REACTIONS (3)
  - Incorrect route of product administration [Unknown]
  - Poisoning deliberate [Recovered/Resolved]
  - Off label use [Unknown]

NARRATIVE: CASE EVENT DATE: 20190217
